FAERS Safety Report 18206649 (Version 1)
Quarter: 2020Q3

REPORT INFORMATION
  Report Type: Spontaneous
  Country: US (occurrence: US)
  Receive Date: 20200827
  Receipt Date: 20200827
  Transmission Date: 20201103
  Serious: No
  Sender: FDA-Public Use
  Company Number: None

PATIENT
  Age: 63 Year
  Sex: Female
  Weight: 56.25 kg

DRUGS (5)
  1. ABSORBINE JR. PLUS [Suspect]
     Active Substance: MENTHOL
     Indication: BACK PAIN
     Dosage: ?          OTHER STRENGTH:NONE;QUANTITY:1 PATCH(ES);?
     Route: 062
     Dates: start: 20200825, end: 20200826
  2. HRT [Concomitant]
     Active Substance: UNSPECIFIED INGREDIENT
  3. INHALER [Concomitant]
     Active Substance: UNSPECIFIED INGREDIENT
  4. ONE A DAY VITMINSS [Concomitant]
  5. NYQUIL COUGH SYRUP [Concomitant]

REACTIONS (2)
  - Application site burn [None]
  - Product quality issue [None]

NARRATIVE: CASE EVENT DATE: 20200826
